FAERS Safety Report 6465487-1 (Version None)
Quarter: 2009Q4

REPORT INFORMATION
  Report Type: 
  Country: None (occurrence: None)
  Receive Date: 20091124
  Receipt Date: 20091118
  Transmission Date: 20100525
  Serious: Yes (Hospitalization, Disabling)
  Sender: FDA-Public Use
  Company Number: 2009SP037024

PATIENT

DRUGS (2)
  1. PEG-INTRON [Suspect]
     Indication: HEPATITIS C
     Dates: end: 20091109
  2. REBETOL [Suspect]
     Indication: HEPATITIS C
     Dates: end: 20091109

REACTIONS (1)
  - RAYNAUD'S PHENOMENON [None]
